FAERS Safety Report 6183393-7 (Version None)
Quarter: 2009Q2

REPORT INFORMATION
  Report Type: 
  Country: None (occurrence: None)
  Receive Date: 20090507
  Receipt Date: 20090501
  Transmission Date: 20091009
  Serious: Yes (Hospitalization)
  Sender: FDA-Public Use
  Company Number: US-GENENTECH-282424

PATIENT

DRUGS (2)
  1. BEVACIZUMAB [Suspect]
     Indication: DRUG USE FOR UNKNOWN INDICATION
     Dosage: 5 MG/KG, DAYS 1+15
     Route: 042
     Dates: start: 20090401
  2. AZD2171 [Suspect]
     Indication: DRUG USE FOR UNKNOWN INDICATION
     Dosage: 45 MG, QDX21
     Route: 048
     Dates: start: 20090401

REACTIONS (2)
  - ABDOMINAL PAIN [None]
  - HYPOXIA [None]
